FAERS Safety Report 7231033-8 (Version None)
Quarter: 2011Q1

REPORT INFORMATION
  Report Type: 
  Country: None (occurrence: None)
  Receive Date: 20110118
  Receipt Date: 20110105
  Transmission Date: 20110831
  Serious: Yes (Hospitalization, Other)
  Sender: FDA-Public Use
  Company Number: US-ELI_LILLY_AND_COMPANY-US201101001454

PATIENT
  Age: 82 Year
  Sex: Female

DRUGS (3)
  1. ANTIHYPERTENSIVES [Concomitant]
     Indication: HYPERTENSION
  2. CYMBALTA [Suspect]
     Indication: DEPRESSION
     Dosage: 30 MG, DAILY (1/D)
     Dates: start: 20100801
  3. PLAVIX [Concomitant]
     Dosage: 75 MG, UNK

REACTIONS (6)
  - DISTURBANCE IN ATTENTION [None]
  - POLLAKIURIA [None]
  - CORONARY ARTERY OCCLUSION [None]
  - DYSPNOEA [None]
  - MEMORY IMPAIRMENT [None]
  - FAECES DISCOLOURED [None]
